FAERS Safety Report 22120712 (Version 2)
Quarter: 2023Q1

REPORT INFORMATION
  Report Type: Spontaneous
  Country: US (occurrence: US)
  Receive Date: 20230321
  Receipt Date: 20230324
  Transmission Date: 20230418
  Serious: Yes (Other)
  Sender: FDA-Public Use
  Company Number: US-ALVOGEN-2023089397

PATIENT
  Sex: Female

DRUGS (3)
  1. FENTANYL [Suspect]
     Active Substance: FENTANYL
     Indication: Product used for unknown indication
  2. FENTANYL [Suspect]
     Active Substance: FENTANYL
     Indication: Product used for unknown indication
     Dosage: EXPIRATION DATE: MAY-2025.
  3. TRILEPTAL [Suspect]
     Active Substance: OXCARBAZEPINE
     Indication: Product used for unknown indication

REACTIONS (5)
  - Acute febrile neutrophilic dermatosis [Unknown]
  - Device malfunction [Unknown]
  - Device adhesion issue [Unknown]
  - Device issue [Unknown]
  - Product dose omission issue [Unknown]
